FAERS Safety Report 12366432 (Version 11)
Quarter: 2018Q4

REPORT INFORMATION
  Report Type: Report from Study
  Country: DK (occurrence: DK)
  Receive Date: 20160513
  Receipt Date: 20181204
  Transmission Date: 20190204
  Serious: Yes (Death, Hospitalization)
  Sender: FDA-Public Use
  Company Number: DK-ROCHE-1755407

PATIENT
  Age: 70 Year
  Sex: Male
  Weight: 66.3 kg

DRUGS (65)
  1. NATRIUMCHLORID [Concomitant]
     Active Substance: SODIUM CHLORIDE
     Indication: HYPONATRAEMIA
     Route: 042
     Dates: start: 20160408, end: 20160408
  2. FUROSEMID [Concomitant]
     Active Substance: FUROSEMIDE
     Indication: OEDEMA PERIPHERAL
     Route: 042
     Dates: start: 20160408, end: 20160414
  3. CLEMASTIN [Concomitant]
     Active Substance: CLEMASTINE
     Route: 048
     Dates: start: 20160511, end: 20160511
  4. METHYLPREDNISOLON [Concomitant]
     Active Substance: METHYLPREDNISOLONE
     Route: 042
     Dates: start: 20160421, end: 20160421
  5. ERYTHROCYTE TRANSFUSIONS [Concomitant]
     Indication: HAEMOGLOBIN DECREASED
     Dosage: DOSE:1 UNIT
     Route: 042
     Dates: start: 20160410, end: 20160410
  6. DIGOXIN. [Concomitant]
     Active Substance: DIGOXIN
     Indication: TACHYCARDIA
     Route: 048
     Dates: start: 20160609, end: 20160609
  7. NATRIUMCHLORID [Concomitant]
     Active Substance: SODIUM CHLORIDE
     Route: 042
     Dates: start: 20160413, end: 20160413
  8. PARACETAMOL [Concomitant]
     Active Substance: ACETAMINOPHEN
     Indication: PROPHYLAXIS
     Route: 048
     Dates: start: 20160414, end: 20160414
  9. PARACETAMOL [Concomitant]
     Active Substance: ACETAMINOPHEN
     Route: 048
     Dates: start: 20160421, end: 20160421
  10. CLEMASTIN [Concomitant]
     Active Substance: CLEMASTINE
     Route: 048
     Dates: start: 20160421, end: 20160421
  11. NATRIUMHYDROGENCARBONAT [Concomitant]
     Active Substance: SODIUM BICARBONATE
     Dosage: 1 OTHER
     Route: 048
     Dates: start: 20160524
  12. MEROPENEM. [Concomitant]
     Active Substance: MEROPENEM
     Route: 042
     Dates: start: 20160603
  13. GLUCOSE [Concomitant]
     Active Substance: DEXTROSE
     Route: 042
     Dates: start: 20160603, end: 20160603
  14. LINEZOLID. [Concomitant]
     Active Substance: LINEZOLID
     Route: 042
     Dates: start: 20160609
  15. TRANDOLAPRIL. [Concomitant]
     Active Substance: TRANDOLAPRIL
     Indication: HYPERTENSION
     Route: 048
     Dates: start: 20160408
  16. NATRIUMCHLORID [Concomitant]
     Active Substance: SODIUM CHLORIDE
     Route: 042
     Dates: start: 20160409, end: 20160409
  17. NATRIUMCHLORID [Concomitant]
     Active Substance: SODIUM CHLORIDE
     Route: 048
     Dates: start: 20160415, end: 20160415
  18. PARACETAMOL [Concomitant]
     Active Substance: ACETAMINOPHEN
     Route: 048
     Dates: start: 20160428, end: 20160428
  19. CLEMASTIN [Concomitant]
     Active Substance: CLEMASTINE
     Route: 048
     Dates: start: 20160428, end: 20160428
  20. METHYLPREDNISOLON [Concomitant]
     Active Substance: METHYLPREDNISOLONE
     Route: 042
     Dates: start: 20160428, end: 20160428
  21. METHYLPREDNISOLON [Concomitant]
     Active Substance: METHYLPREDNISOLONE
     Route: 042
     Dates: start: 20160511, end: 20160511
  22. PETHIDIN [Concomitant]
     Active Substance: MEPERIDINE
     Indication: INFUSION RELATED REACTION
     Route: 042
     Dates: start: 20160414, end: 20160414
  23. MICONAZOL [Concomitant]
     Active Substance: MICONAZOLE NITRATE
     Indication: ANAL FUNGAL INFECTION
     Route: 065
     Dates: start: 20160504, end: 20160518
  24. MEROPENEM. [Concomitant]
     Active Substance: MEROPENEM
     Indication: EPSTEIN-BARR VIRUS INFECTION
     Route: 042
     Dates: start: 20160408, end: 20160411
  25. CEFTAZIDIM [Concomitant]
     Active Substance: CEFTAZIDIME
     Indication: EPSTEIN-BARR VIRUS INFECTION
     Route: 042
     Dates: start: 20160415, end: 20160418
  26. OBINUTUZUMAB. [Suspect]
     Active Substance: OBINUTUZUMAB
     Indication: CHRONIC LYMPHOCYTIC LEUKAEMIA
     Dosage: MOST RECENT DOSE AT 1000 MG WAS TAKEN ON ON 28/APR/2016 AT 12:00 HOURS PRIOR TO FIRST EPISODE OF INF
     Route: 042
     Dates: start: 20160414
  27. ALLOPURINOL. [Concomitant]
     Active Substance: ALLOPURINOL
     Route: 048
     Dates: start: 20160404, end: 20160409
  28. KALIUMCHLORID [Concomitant]
     Active Substance: POTASSIUM CHLORIDE
     Dosage: 1 OTHER
     Route: 048
     Dates: start: 20160524
  29. PARACETAMOL [Concomitant]
     Active Substance: ACETAMINOPHEN
     Route: 048
     Dates: start: 20160415, end: 20160415
  30. PARACETAMOL [Concomitant]
     Active Substance: ACETAMINOPHEN
     Route: 042
     Dates: start: 20160609, end: 20160609
  31. METHYLPREDNISOLON [Concomitant]
     Active Substance: METHYLPREDNISOLONE
     Route: 042
     Dates: start: 20160415, end: 20160415
  32. NYSTATIN. [Concomitant]
     Active Substance: NYSTATIN
     Indication: ORAL FUNGAL INFECTION
     Route: 048
     Dates: start: 20160504
  33. ERYTHROCYTE TRANSFUSIONS [Concomitant]
     Dosage: DOSE:1 UNIT
     Route: 042
     Dates: start: 20160412, end: 20160412
  34. FLUCONAZOL [Concomitant]
     Active Substance: FLUCONAZOLE
     Route: 048
     Dates: start: 20160603
  35. VENETOCLAX. [Suspect]
     Active Substance: VENETOCLAX
     Indication: CHRONIC LYMPHOCYTIC LEUKAEMIA
     Dosage: MOST RECENT DOSE TAKEN ON 04/MAY/2016 11:30 HOURS PRIOR TO FIRST EPISODE OF INFECTION UNKNOWN FOCUS
     Route: 048
     Dates: start: 20160504
  36. IBUPROFEN. [Concomitant]
     Active Substance: IBUPROFEN
     Indication: PAIN IN EXTREMITY
     Route: 048
  37. AMLODIPIN [Concomitant]
     Active Substance: AMLODIPINE BESYLATE
     Indication: HYPERTENSION
     Route: 048
     Dates: start: 20160408
  38. ESCITALOPRAM [Concomitant]
     Active Substance: ESCITALOPRAM OXALATE
     Indication: DEPRESSION
     Route: 048
     Dates: start: 20160330, end: 20160503
  39. NATRIUMCHLORID [Concomitant]
     Active Substance: SODIUM CHLORIDE
     Dosage: 1 OTHER
     Route: 048
     Dates: start: 20160524
  40. NATRIUMCHLORID [Concomitant]
     Active Substance: SODIUM CHLORIDE
     Route: 042
     Dates: start: 20160603, end: 20160608
  41. FUROSEMID [Concomitant]
     Active Substance: FUROSEMIDE
     Route: 042
     Dates: start: 20160416, end: 20160418
  42. BENDROFLUMETHIAZIDE/KALIUM CHLORID [Concomitant]
     Indication: OEDEMA PERIPHERAL
     Route: 048
     Dates: start: 20160421
  43. MACROGOL 3350 [Concomitant]
     Active Substance: POLYETHYLENE GLYCOL 3350
     Indication: CONSTIPATION
     Route: 048
     Dates: start: 20160524
  44. DIPYRIDAMOL [Concomitant]
     Active Substance: DIPYRIDAMOLE
     Indication: CEREBROVASCULAR ACCIDENT
     Route: 048
  45. ALLOPURINOL. [Concomitant]
     Active Substance: ALLOPURINOL
     Route: 048
     Dates: start: 20160413
  46. NATRIUMCHLORID [Concomitant]
     Active Substance: SODIUM CHLORIDE
     Route: 042
     Dates: start: 20160504, end: 20160504
  47. FUROSEMID [Concomitant]
     Active Substance: FUROSEMIDE
     Route: 042
     Dates: start: 20160424, end: 20160428
  48. KALIUMCHLORID [Concomitant]
     Active Substance: POTASSIUM CHLORIDE
     Indication: HYPOKALAEMIA
     Route: 048
     Dates: start: 20160410, end: 20160410
  49. CLEMASTIN [Concomitant]
     Active Substance: CLEMASTINE
     Indication: PROPHYLAXIS
     Route: 048
     Dates: start: 20160414, end: 20160414
  50. NATRIUMHYDROGENCARBONAT [Concomitant]
     Active Substance: SODIUM BICARBONATE
     Indication: CONSTIPATION
     Dosage: 1 OTHER
     Route: 048
     Dates: start: 20160524
  51. ERYTHROCYTE TRANSFUSIONS [Concomitant]
     Dosage: 1 U
     Route: 042
     Dates: start: 20160609, end: 20160609
  52. ESCITALOPRAM [Concomitant]
     Active Substance: ESCITALOPRAM OXALATE
     Route: 048
     Dates: start: 20160504
  53. NATRIUMCHLORID [Concomitant]
     Active Substance: SODIUM CHLORIDE
     Route: 042
     Dates: start: 20160414, end: 20160414
  54. NATRIUMCHLORID [Concomitant]
     Active Substance: SODIUM CHLORIDE
     Route: 042
     Dates: start: 20160601, end: 20160601
  55. FUROSEMID [Concomitant]
     Active Substance: FUROSEMIDE
     Route: 042
     Dates: start: 20160421, end: 20160423
  56. OMEGA 3 [Concomitant]
     Active Substance: OMEGA-3 FATTY ACIDS
     Indication: VITAMIN SUPPLEMENTATION
     Route: 048
     Dates: start: 20160317
  57. ERYTHROCYTE TRANSFUSIONS [Concomitant]
     Route: 042
     Dates: start: 20160414, end: 20160414
  58. ERYTHROCYTE TRANSFUSIONS [Concomitant]
     Route: 042
     Dates: start: 20160418, end: 20160418
  59. CEFUROXIM [Concomitant]
     Active Substance: CEFUROXIME
     Indication: EPSTEIN-BARR VIRUS INFECTION
     Route: 042
     Dates: start: 20160408, end: 20160408
  60. DIGOXIN. [Concomitant]
     Active Substance: DIGOXIN
     Route: 048
     Dates: start: 20160610, end: 20160610
  61. ROSUVASTATIN. [Concomitant]
     Active Substance: ROSUVASTATIN
     Indication: HYPERCHOLESTEROLAEMIA
     Route: 048
     Dates: start: 20160409
  62. ACETYLSALICYLSYRE [Concomitant]
     Active Substance: ASPIRIN
     Indication: MYOCARDIAL INFARCTION
     Route: 048
  63. CLEMASTIN [Concomitant]
     Active Substance: CLEMASTINE
     Route: 048
     Dates: start: 20160415, end: 20160415
  64. METHYLPREDNISOLON [Concomitant]
     Active Substance: METHYLPREDNISOLONE
     Indication: PROPHYLAXIS
     Route: 042
     Dates: start: 20160414, end: 20160414
  65. ERYTHROCYTE TRANSFUSIONS [Concomitant]
     Route: 042
     Dates: start: 20160513, end: 20160513

REACTIONS (1)
  - Infection [Recovered/Resolved]

NARRATIVE: CASE EVENT DATE: 20160505
